FAERS Safety Report 6631498-6 (Version None)
Quarter: 2010Q1

REPORT INFORMATION
  Report Type: 
  Country: None (occurrence: None)
  Receive Date: 20100312
  Receipt Date: 20100301
  Transmission Date: 20100710
  Serious: Yes (Disabling, Other)
  Sender: FDA-Public Use
  Company Number: PHHY2010DE09726

PATIENT
  Sex: Female
  Weight: 65 kg

DRUGS (2)
  1. ACLASTA/ZOLEDRONATE T29581+A++OS [Suspect]
     Indication: OSTEOPOROSIS
     Dosage: 5 MG ONCE YEARLY
     Route: 042
     Dates: start: 20100125, end: 20100125
  2. MARCUMAR [Concomitant]
     Indication: COAGULOPATHY

REACTIONS (4)
  - MONARTHRITIS [None]
  - OROPHARYNGEAL PAIN [None]
  - PYREXIA [None]
  - RENAL PAIN [None]
